FAERS Safety Report 5559070-X (Version None)
Quarter: 2007Q4

REPORT INFORMATION
  Report Type: 
  Country: None (occurrence: None)
  Receive Date: 20071214
  Receipt Date: 20071211
  Transmission Date: 20080405
  Serious: Yes (Other)
  Sender: FDA-Public Use
  Company Number: US-PFIZER INC-2007103830

PATIENT
  Sex: Male
  Weight: 122.5 kg

DRUGS (3)
  1. GEODON [Suspect]
     Indication: SCHIZOPHRENIA
  2. LIPITOR [Suspect]
  3. TRILIFAN [Suspect]

REACTIONS (1)
  - NEUROLEPTIC MALIGNANT SYNDROME [None]
